FAERS Safety Report 21575384 (Version 1)
Quarter: 2022Q4

REPORT INFORMATION
  Report Type: Spontaneous
  Country: US (occurrence: US)
  Receive Date: 20221110
  Receipt Date: 20221110
  Transmission Date: 20230112
  Serious: No
  Sender: FDA-Public Use
  Company Number: US-SA-SAC20221104000322

PATIENT
  Age: 29 Year
  Sex: Female
  Weight: 76 kg

DRUGS (6)
  1. DUPIXENT [Suspect]
     Active Substance: DUPILUMAB
     Indication: Asthma
     Dosage: 300 MG, QOW
     Route: 058
     Dates: start: 202207, end: 2022
  2. SPIRIVA [Concomitant]
     Active Substance: TIOTROPIUM BROMIDE MONOHYDRATE
  3. ADVAIR HFA [Concomitant]
     Active Substance: FLUTICASONE PROPIONATE\SALMETEROL XINAFOATE
  4. ALBUTEROL SULFATE [Concomitant]
     Active Substance: ALBUTEROL SULFATE
  5. ZYRTEC [Concomitant]
     Active Substance: CETIRIZINE HYDROCHLORIDE
  6. MONTELUKAST SODIUM [Concomitant]
     Active Substance: MONTELUKAST SODIUM

REACTIONS (9)
  - Asthma [Unknown]
  - Sneezing [Unknown]
  - Wheezing [Unknown]
  - Ocular hyperaemia [Unknown]
  - Throat irritation [Unknown]
  - Superficial injury of eye [Unknown]
  - Secretion discharge [Unknown]
  - Nasal congestion [Unknown]
  - Ear pruritus [Unknown]

NARRATIVE: CASE EVENT DATE: 20221001
